FAERS Safety Report 8993459 (Version 1)
Quarter: 2013Q1

REPORT INFORMATION
  Report Type: Spontaneous
  Country: CA (occurrence: CA)
  Receive Date: 20130102
  Receipt Date: 20130102
  Transmission Date: 20140127
  Serious: Yes (Hospitalization, Other)
  Sender: FDA-Public Use
  Company Number: CA-JNJFOC-20130100458

PATIENT
  Sex: Female

DRUGS (8)
  1. XARELTO [Suspect]
     Indication: THROMBOSIS PROPHYLAXIS
     Route: 048
     Dates: start: 20110224
  2. CITALOPRAM [Interacting]
     Indication: PRODUCT USED FOR UNKNOWN INDICATION
  3. LACTULOSE [Concomitant]
  4. FERROUS SULPHATE [Concomitant]
  5. EYE DROPS [Concomitant]
  6. CALCIUM [Concomitant]
  7. ZYPREXA [Concomitant]
  8. MULTIVITAMIN TABLET [Concomitant]

REACTIONS (4)
  - Renal failure [Unknown]
  - Blood pressure increased [Unknown]
  - Blood creatinine increased [Unknown]
  - Drug interaction [Unknown]
